FAERS Safety Report 7917674-0 (Version None)
Quarter: 2011Q4

REPORT INFORMATION
  Report Type: 
  Country: None (occurrence: None)
  Receive Date: 20111116
  Receipt Date: 20111108
  Transmission Date: 20120403
  Serious: Yes (Hospitalization)
  Sender: FDA-Public Use
  Company Number: US-BAXTER-2011BH035531

PATIENT
  Age: 63 Year
  Sex: Female

DRUGS (2)
  1. DIANEAL [Suspect]
     Indication: PERITONEAL DIALYSIS
     Route: 033
  2. DIANEAL [Suspect]
     Indication: PERITONEAL DIALYSIS
     Route: 033

REACTIONS (6)
  - INTESTINAL OBSTRUCTION [None]
  - CATHETER SITE INFLAMMATION [None]
  - ABDOMINAL PAIN [None]
  - CONSTIPATION [None]
  - ABDOMINAL DISTENSION [None]
  - COLITIS [None]
